FAERS Safety Report 7733625-6 (Version None)
Quarter: 2011Q3

REPORT INFORMATION
  Report Type: 
  Country: None (occurrence: None)
  Receive Date: 20110907
  Receipt Date: 20110829
  Transmission Date: 20111222
  Serious: Yes (Hospitalization)
  Sender: FDA-Public Use
  Company Number: BR-ASTRAZENECA-2011SE52320

PATIENT
  Age: 92 Year
  Sex: Female
  Weight: 60 kg

DRUGS (3)
  1. VITAMIN TAB [Concomitant]
     Route: 048
  2. ATACAND HCT [Suspect]
     Indication: HYPERTENSION
     Dosage: 16+12.5 MG DAILY
     Route: 048
     Dates: start: 20080101, end: 20110801
  3. CALCIUM CARBONATE [Concomitant]
     Route: 048

REACTIONS (2)
  - BLOOD URIC ACID INCREASED [None]
  - NECK MASS [None]
